FAERS Safety Report 5452366-1 (Version None)
Quarter: 2007Q3

REPORT INFORMATION
  Report Type: 
  Country: None (occurrence: None)
  Receive Date: 20070802
  Receipt Date: 20070427
  Transmission Date: 20080115
  Serious: Yes (Other)
  Sender: FDA-Public Use
  Company Number: 495126

PATIENT
  Age: 59 Year
  Sex: Female
  Weight: 64.2 kg

DRUGS (1)
  1. BONIVA [Suspect]
     Indication: DRUG USE FOR UNKNOWN INDICATION
     Dosage: 1 PER 3 MONTH INTRAVENOUS
     Route: 042
     Dates: start: 20070115, end: 20070423

REACTIONS (5)
  - ARTHRALGIA [None]
  - BONE PAIN [None]
  - DYSPEPSIA [None]
  - MYALGIA [None]
  - PAIN IN EXTREMITY [None]
